FAERS Safety Report 5863830-5 (Version None)
Quarter: 2008Q3

REPORT INFORMATION
  Report Type: 
  Country: None (occurrence: None)
  Receive Date: 20080827
  Receipt Date: 20080822
  Transmission Date: 20090109
  Serious: Yes (Other)
  Sender: FDA-Public Use
  Company Number: 2008SP015793

PATIENT
  Age: 64 Year
  Sex: Male

DRUGS (8)
  1. CLARITIN [Suspect]
     Indication: SEASONAL ALLERGY
     Dosage: 10 MG; PO
     Route: 048
  2. XYZAL [Suspect]
     Indication: SEASONAL ALLERGY
     Dosage: 5 MG; QD; PO, 5 MG; QD; PO
     Route: 048
     Dates: start: 20080512, end: 20080516
  3. XYZAL [Suspect]
     Indication: SEASONAL ALLERGY
     Dosage: 5 MG; QD; PO, 5 MG; QD; PO
     Route: 048
     Dates: start: 20080610, end: 20080612
  4. COUMADIN [Concomitant]
  5. CIALIS [Concomitant]
  6. COZAAR [Concomitant]
  7. LIPITOR [Concomitant]
  8. TOPROL-XL [Concomitant]

REACTIONS (2)
  - INTERNATIONAL NORMALISED RATIO INCREASED [None]
  - PROTHROMBIN TIME PROLONGED [None]
